FAERS Safety Report 5284156-7 (Version None)
Quarter: 2007Q1

REPORT INFORMATION
  Report Type: 
  Country: None (occurrence: None)
  Receive Date: 20070328
  Receipt Date: 20060117
  Transmission Date: 20070707
  Serious: Yes (Disabling)
  Sender: FDA-Public Use
  Company Number: GXBR2006US02233

PATIENT
  Sex: Female

DRUGS (1)
  1. ISONIAZID [Suspect]

REACTIONS (5)
  - ARTHRALGIA [None]
  - DIABETES MELLITUS [None]
  - HEPATOCELLULAR DAMAGE [None]
  - NEUROPATHY PERIPHERAL [None]
  - PAIN IN EXTREMITY [None]
